FAERS Safety Report 6520354-X (Version None)
Quarter: 2009Q4

REPORT INFORMATION
  Report Type: 
  Country: None (occurrence: None)
  Receive Date: 20091229
  Receipt Date: 20091214
  Transmission Date: 20100525
  Serious: Yes (Other)
  Sender: FDA-Public Use
  Company Number: US-PFIZER INC-2009311231

PATIENT
  Age: 33 Year
  Sex: Female
  Weight: 68.027 kg

DRUGS (3)
  1. CHANTIX [Suspect]
     Indication: SMOKING CESSATION THERAPY
     Dosage: UNK
     Route: 048
     Dates: start: 20090101
  2. PROZAC [Concomitant]
     Indication: DEPRESSION
     Dosage: 60 MG, 1X/DAY
  3. TEGRETOL [Concomitant]
     Indication: CONVULSION
     Dosage: 200 MG, 1X/DAY

REACTIONS (2)
  - MENTAL DISORDER [None]
  - SUICIDAL IDEATION [None]
